FAERS Safety Report 4505921-7 (Version None)
Quarter: 2004Q4

REPORT INFORMATION
  Report Type: 
  Country: None (occurrence: None)
  Receive Date: 20041025
  Receipt Date: 20031007
  Transmission Date: 20050328
  Serious: Yes (Hospitalization)
  Sender: FDA-Public Use
  Company Number: US-JNJFOC-20030900236

PATIENT
  Age: 70 Year
  Sex: Male
  Weight: 78.0187 kg

DRUGS (7)
  1. REMICADE [Suspect]
     Indication: CROHN'S DISEASE
     Dosage: 5 MG/KG, 1 IN 1 DAY, INTRAVENOUS
     Route: 042
     Dates: start: 20030717
  2. REMICADE [Suspect]
     Indication: CROHN'S DISEASE
     Dosage: 5 MG/KG, 1 IN 1 DAY, INTRAVENOUS
     Route: 042
     Dates: start: 20030801
  3. PREDNISONE [Concomitant]
  4. ASACOL [Concomitant]
  5. TRIAMTERENE (TRIAMTERENE) [Concomitant]
  6. MERCAPTOPURINE [Concomitant]
  7. METRONIDAZOLE [Concomitant]

REACTIONS (4)
  - BACTERIAL INFECTION [None]
  - DYSPNOEA [None]
  - PNEUMONITIS [None]
  - RASH MACULO-PAPULAR [None]
